APPROVED DRUG PRODUCT: OPSYNVI
Active Ingredient: MACITENTAN; TADALAFIL
Strength: 10MG;20MG
Dosage Form/Route: TABLET;ORAL
Application: N218490 | Product #001
Applicant: ACTELION PHARMACEUTICALS US INC
Approved: Mar 22, 2024 | RLD: Yes | RS: No | Type: RX

PATENTS:
Patent 10946015 | Expires: Sep 11, 2026
Patent 8268847 | Expires: Apr 18, 2029
Patent 7094781 | Expires: Dec 5, 2025
Patent 7094781*PED | Expires: Jun 5, 2026
Patent 8268847*PED | Expires: Oct 18, 2029
Patent 10946015*PED | Expires: Mar 11, 2027

EXCLUSIVITY:
Code: NP | Date: Mar 22, 2027
Code: ODE-475 | Date: Mar 22, 2031
Code: PED | Date: Sep 22, 2027
Code: PED | Date: Sep 22, 2031